FAERS Safety Report 9129868 (Version 1)
Quarter: 2013Q1

REPORT INFORMATION
  Report Type: Spontaneous
  Country: IT (occurrence: IT)
  Receive Date: 20130125
  Receipt Date: 20130125
  Transmission Date: 20140127
  Serious: Yes (Hospitalization)
  Sender: FDA-Public Use
  Company Number: IT-ROCHE-1183590

PATIENT
  Age: 80 Year
  Sex: Female

DRUGS (9)
  1. CEFTRIAXONE [Suspect]
     Indication: BRONCHOPNEUMONIA
     Route: 030
     Dates: start: 20121126, end: 20121201
  2. LEVOFLOXACIN [Suspect]
     Indication: BRONCHOPNEUMONIA
     Route: 048
     Dates: start: 20121121, end: 20121125
  3. AUGMENTIN [Concomitant]
     Dosage: 875 MG/125 MG
     Route: 065
     Dates: start: 20121117, end: 20121120
  4. NORVASC [Concomitant]
     Route: 065
  5. COAPROVEL [Concomitant]
     Dosage: 150 MG /12.5 MG
     Route: 048
  6. TIKLID [Concomitant]
     Route: 065
  7. ONGLYZA [Concomitant]
     Route: 065
  8. REPAGLINIDE [Concomitant]
  9. ALMARYTM [Concomitant]
     Route: 065

REACTIONS (1)
  - Renal failure acute [Unknown]
